FAERS Safety Report 4655112-4 (Version None)
Quarter: 2005Q2

REPORT INFORMATION
  Report Type: 
  Country: None (occurrence: None)
  Receive Date: 20050506
  Receipt Date: 20050426
  Transmission Date: 20051028
  Serious: Yes (Hospitalization)
  Sender: FDA-Public Use
  Company Number: US-JNJFOC-20050407320

PATIENT
  Sex: Female
  Weight: 97.52 kg

DRUGS (21)
  1. DURAGESIC-100 [Suspect]
     Route: 062
     Dates: start: 20040201
  2. DURAGESIC-100 [Suspect]
     Route: 062
     Dates: start: 20040201
  3. HYDROCODONE BITARTRATE [Concomitant]
     Dosage: 10/325 MG PRN, TAKING FOR YEARS, UNSPECIFIED
     Route: 049
  4. CELEBREX [Concomitant]
     Route: 049
  5. NEURONTIN [Concomitant]
     Route: 049
     Dates: start: 20040101
  6. ATIVAN [Concomitant]
     Indication: ANXIETY
     Route: 049
     Dates: start: 20050401
  7. PREVACID [Concomitant]
     Indication: GASTRIC DISORDER
     Route: 049
  8. LEVOTHROID [Concomitant]
     Indication: THYROID DISORDER
     Route: 049
  9. BACLOFEN [Concomitant]
     Route: 049
  10. ZOLOFT [Concomitant]
     Indication: DEPRESSION
     Route: 049
     Dates: start: 20020101
  11. ELAVIL [Concomitant]
     Indication: DEPRESSION
     Route: 049
  12. ESTRATEST [Concomitant]
     Route: 049
  13. ESTRATEST [Concomitant]
     Indication: HORMONE REPLACEMENT THERAPY
     Dosage: 1.25/2.5 MG
     Route: 049
  14. RESTASIS [Concomitant]
     Dosage: 2 DROPS
     Route: 031
  15. AFRIN [Concomitant]
     Route: 045
  16. AFRIN [Concomitant]
     Route: 045
  17. AFRIN [Concomitant]
     Route: 045
  18. AFRIN [Concomitant]
     Route: 045
  19. AFRIN [Concomitant]
     Route: 045
  20. ACIDOPHILUS [Concomitant]
     Indication: GASTRIC DISORDER
     Route: 049
  21. VITAMIN B-12 [Concomitant]
     Indication: ENERGY INCREASED
     Route: 049

REACTIONS (2)
  - DIVERTICULUM [None]
  - THERAPEUTIC RESPONSE DECREASED [None]
